FAERS Safety Report 23743762 (Version 2)
Quarter: 2024Q2

REPORT INFORMATION
  Report Type: Spontaneous
  Country: US (occurrence: US)
  Receive Date: 20240415
  Receipt Date: 20240513
  Transmission Date: 20240716
  Serious: No
  Sender: FDA-Public Use
  Company Number: US-SANDOZ-SDZ2024US038997

PATIENT
  Sex: Female

DRUGS (2)
  1. ESTRADIOL [Suspect]
     Active Substance: ESTRADIOL
     Dosage: 0.1MG/1D 4TTSM
     Route: 062
  2. ESTRADIOL [Suspect]
     Active Substance: ESTRADIOL
     Indication: Product used for unknown indication
     Dosage: L 0.1MG/1D 4TTSM
     Route: 062

REACTIONS (5)
  - Skin wrinkling [Unknown]
  - Application site vesicles [Unknown]
  - Product adhesion issue [Unknown]
  - Product quality issue [Unknown]
  - Incorrect dose administered [Unknown]
